FAERS Safety Report 15266541 (Version 3)
Quarter: 2018Q3

REPORT INFORMATION
  Report Type: Spontaneous
  Country: DE (occurrence: DE)
  Receive Date: 20180810
  Receipt Date: 20180829
  Transmission Date: 20181010
  Serious: Yes (Life-Threatening, Hospitalization)
  Sender: FDA-Public Use
  Company Number: PHHY2018DE068607

PATIENT
  Age: 49 Year
  Sex: Male
  Weight: 82 kg

DRUGS (9)
  1. BEVACIZUMAB. [Suspect]
     Active Substance: BEVACIZUMAB
     Indication: NON-SMALL CELL LUNG CANCER
     Dosage: 7.5 MG/KG (580 MG), Q3W
     Route: 042
     Dates: start: 20131030, end: 20131120
  2. BEVACIZUMAB. [Suspect]
     Active Substance: BEVACIZUMAB
     Dosage: 580 MG
     Route: 042
     Dates: start: 20131030, end: 20131120
  3. CARBOPLATIN. [Suspect]
     Active Substance: CARBOPLATIN
     Indication: NON-SMALL CELL LUNG CANCER
     Dosage: 580 MG, Q3W (AUC4)
     Route: 042
     Dates: start: 20131001
  4. GEMCITABINE [Suspect]
     Active Substance: GEMCITABINE\GEMCITABINE HYDROCHLORIDE
     Indication: NON-SMALL CELL LUNG CANCER
     Dosage: 1800 MG, UNK (1000MG/M2; DAY 1 AND DAY 8)
     Route: 042
     Dates: start: 20131001, end: 20131127
  5. CARBOPLATIN. [Suspect]
     Active Substance: CARBOPLATIN
     Dosage: 585 MG, Q3W (AUC4)
     Route: 042
     Dates: start: 20131001
  6. PAMIDRONATE [Concomitant]
     Active Substance: PAMIDRONATE DISODIUM
     Indication: METASTASES TO BONE
     Dosage: 60 MG, Q3W
     Route: 042
     Dates: start: 20131106, end: 20131127
  7. METAMIZOL [Concomitant]
     Active Substance: METAMIZOLE SODIUM
     Indication: PAIN
     Dosage: 500 MG, QD (DAILY DOSE: 2000 MG MILLGRAM(S) EVERY DAYS)
     Route: 048
  8. NOVALGIN (METAMIZOLE SODIUM) [Concomitant]
     Active Substance: METAMIZOLE SODIUM
     Indication: PAIN
     Dosage: 500 MG, UNK (MAXIMUM OF 8 TABLETS PER DAY)
     Route: 048
  9. SPIRIVA [Concomitant]
     Active Substance: TIOTROPIUM BROMIDE MONOHYDRATE
     Indication: CHRONIC OBSTRUCTIVE PULMONARY DISEASE
     Dosage: 18 UG, QD (1?0?0)
     Route: 048
     Dates: start: 20130918

REACTIONS (3)
  - Pericardial effusion [Recovering/Resolving]
  - Pulmonary embolism [Recovering/Resolving]
  - Chronic fatigue syndrome [Unknown]

NARRATIVE: CASE EVENT DATE: 20131106
